FAERS Safety Report 6529460-7 (Version None)
Quarter: 2010Q1

REPORT INFORMATION
  Report Type: 
  Country: None (occurrence: None)
  Receive Date: 20100107
  Receipt Date: 20091230
  Transmission Date: 20100710
  Serious: Yes (Other)
  Sender: FDA-Public Use
  Company Number: BR-JNJFOC-20091207583

PATIENT
  Age: 35 Year
  Sex: Male
  Weight: 83 kg

DRUGS (2)
  1. HALDOL [Suspect]
     Indication: DEMENTIA
     Route: 065
  2. HALDOL [Suspect]
     Indication: MANIA
     Route: 065

REACTIONS (6)
  - DIZZINESS [None]
  - HYPOKINESIA [None]
  - INSOMNIA [None]
  - MUSCULOSKELETAL STIFFNESS [None]
  - RESTLESSNESS [None]
  - WRONG TECHNIQUE IN DRUG USAGE PROCESS [None]
